FAERS Safety Report 13108890 (Version 1)
Quarter: 2017Q1

REPORT INFORMATION
  Report Type: Spontaneous
  Country: US (occurrence: US)
  Receive Date: 20170112
  Receipt Date: 20170112
  Transmission Date: 20170428
  Serious: Yes (Life-Threatening, Hospitalization)
  Sender: FDA-Public Use
  Company Number: None

PATIENT
  Age: 55 Year
  Sex: Male
  Weight: 117.7 kg

DRUGS (11)
  1. OMEPRAZOLE. [Concomitant]
     Active Substance: OMEPRAZOLE
  2. METFORMIN [Concomitant]
     Active Substance: METFORMIN HYDROCHLORIDE
  3. CHLORTHALIDONE. [Concomitant]
     Active Substance: CHLORTHALIDONE
  4. DIPHENHYDRAMINE. [Concomitant]
     Active Substance: DIPHENHYDRAMINE
  5. ATORVASTATIN [Concomitant]
     Active Substance: ATORVASTATIN
  6. OLARATUMAB 500MG/50ML [Suspect]
     Active Substance: OLARATUMAB
     Indication: LEIOMYOSARCOMA
     Dosage: ?          OTHER FREQUENCY:DAY1+8 Q 21D;?
     Route: 041
     Dates: start: 20170110, end: 20170110
  7. DEXAMETHASONE. [Concomitant]
     Active Substance: DEXAMETHASONE
  8. POTASSIUM CHLORIDE. [Concomitant]
     Active Substance: POTASSIUM CHLORIDE
  9. PALONOSETRON [Concomitant]
     Active Substance: PALONOSETRON
  10. FOSAPREPITANT [Suspect]
     Active Substance: FOSAPREPITANT
  11. LUPRON [Concomitant]
     Active Substance: LEUPROLIDE ACETATE

REACTIONS (7)
  - Dyspnoea [None]
  - Hypotension [None]
  - Respiratory failure [None]
  - Unresponsive to stimuli [None]
  - Acute myocardial infarction [None]
  - Anaphylactic reaction [None]
  - Malaise [None]

NARRATIVE: CASE EVENT DATE: 20170110
